FAERS Safety Report 7335275-2 (Version None)
Quarter: 2011Q1

REPORT INFORMATION
  Report Type: 
  Country: None (occurrence: None)
  Receive Date: 20110307
  Receipt Date: 20110302
  Transmission Date: 20110831
  Serious: Yes (Disabling, Other)
  Sender: FDA-Public Use
  Company Number: US-PFIZER INC-2010167021

PATIENT
  Sex: Male

DRUGS (1)
  1. CHANTIX [Suspect]
     Indication: SMOKING CESSATION THERAPY
     Dosage: 0.5 AND 1 MG
     Dates: start: 20080914, end: 20081107

REACTIONS (4)
  - MENTAL DISORDER [None]
  - ANXIETY [None]
  - DEPRESSION [None]
  - INSOMNIA [None]
